FAERS Safety Report 9454661 (Version 1)
Quarter: 2013Q3

REPORT INFORMATION
  Report Type: Spontaneous
  Country: GB (occurrence: GB)
  Receive Date: 20130812
  Receipt Date: 20130812
  Transmission Date: 20140515
  Serious: Yes (Death, Other)
  Sender: FDA-Public Use
  Company Number: GB-B.I. PHARMACEUTICALS,INC./RIDGEFIELD-2013-UK-01632UK

PATIENT
  Age: 80 Year
  Sex: Female
  Weight: 80 kg

DRUGS (2)
  1. PRADAXA [Suspect]
     Indication: PROPHYLAXIS
     Route: 048
     Dates: start: 20130728, end: 20130728
  2. PRADAXA [Suspect]
     Indication: CEREBROVASCULAR ACCIDENT

REACTIONS (3)
  - Cerebral haemorrhage [Fatal]
  - Headache [Unknown]
  - Asthenia [Unknown]
